FAERS Safety Report 11068832 (Version 1)
Quarter: 2015Q2

REPORT INFORMATION
  Report Type: Spontaneous
  Country: TR (occurrence: TR)
  Receive Date: 20150427
  Receipt Date: 20150427
  Transmission Date: 20150821
  Serious: Yes (Other)
  Sender: FDA-Public Use
  Company Number: TR-CIPLA LTD.-2015TR03257

PATIENT

DRUGS (4)
  1. PAROXETINE [Suspect]
     Active Substance: PAROXETINE\PAROXETINE HYDROCHLORIDE
     Indication: INTENTIONAL SELF-INJURY
     Dosage: 40 MG, DAILY
  2. BIPERIDENE [Suspect]
     Active Substance: BIPERIDEN
     Indication: INTENTIONAL SELF-INJURY
     Dosage: 2 MG/ DAY
  3. CARBAMAZEPINE. [Suspect]
     Active Substance: CARBAMAZEPINE
     Indication: INTENTIONAL SELF-INJURY
     Dosage: 400 MG/DAY
  4. RISPERIDONE. [Suspect]
     Active Substance: RISPERIDONE
     Indication: INTENTIONAL SELF-INJURY
     Dosage: 2 MG/DAY

REACTIONS (3)
  - Familial mediterranean fever [Unknown]
  - Headache [Unknown]
  - Drug ineffective [Unknown]
